FAERS Safety Report 5931249-4 (Version None)
Quarter: 2008Q4

REPORT INFORMATION
  Report Type: 
  Country: None (occurrence: None)
  Receive Date: 20081024
  Receipt Date: 20081024
  Transmission Date: 20090506
  Serious: Yes (Hospitalization)
  Sender: FDA-Public Use
  Company Number: None

PATIENT
  Age: 66 Year
  Sex: Female
  Weight: 104.3273 kg

DRUGS (13)
  1. PEG-INTRON [Suspect]
     Indication: HEREDITARY HAEMORRHAGIC TELANGIECTASIA
     Dosage: 96 MICROGRAMS SUBQUTAN
     Route: 058
     Dates: start: 20080319
  2. FERROUS GLUCONATER [Concomitant]
  3. LASIX [Concomitant]
  4. SPIRONOLACTONE [Concomitant]
  5. BENICAR [Concomitant]
  6. PRILOSEC [Concomitant]
  7. MIRAPEX [Concomitant]
  8. FLAGYL [Concomitant]
  9. HYDROCODONE BITARTRATE [Concomitant]
  10. ASCORBIC ACID [Concomitant]
  11. SENNA GEM [Concomitant]
  12. BENZONATATE [Concomitant]
  13. VANCOMYCIN [Concomitant]

REACTIONS (12)
  - ASTHENIA [None]
  - BACK PAIN [None]
  - BACTERIAL INFECTION [None]
  - CHEST PAIN [None]
  - CHILLS [None]
  - CULTURE POSITIVE [None]
  - DYSPNOEA [None]
  - FLANK PAIN [None]
  - HEADACHE [None]
  - MALAISE [None]
  - PYREXIA [None]
  - VOMITING [None]
